FAERS Safety Report 7708135 (Version 2)
Quarter: 2017Q1

REPORT INFORMATION
  Report Type: Spontaneous
  Country: US (occurrence: US)
  Receive Date: 20101214
  Receipt Date: 20170208
  Transmission Date: 20170429
  Serious: Yes (Hospitalization)
  Sender: FDA-Public Use
  Company Number: US-ASTRAZENECA-2010SE11538

PATIENT
  Sex: Female
  Weight: 49.9 kg

DRUGS (11)
  1. PRAVASTATIN. [Concomitant]
     Active Substance: PRAVASTATIN
     Indication: BLOOD CHOLESTEROL ABNORMAL
     Route: 048
  2. LISINOPRIL. [Suspect]
     Active Substance: LISINOPRIL
     Indication: BLOOD PRESSURE ABNORMAL
     Route: 048
  3. PROVENTIL [Concomitant]
     Active Substance: ALBUTEROL
  4. ADVAIR HFA [Concomitant]
     Active Substance: FLUTICASONE PROPIONATE\SALMETEROL XINAFOATE
  5. PROCARDIA [Concomitant]
     Active Substance: NIFEDIPINE
     Indication: HEART RATE IRREGULAR
     Dosage: DAILY
     Route: 048
  6. SYMBICORT [Suspect]
     Active Substance: BUDESONIDE\FORMOTEROL FUMARATE DIHYDRATE
     Indication: EMPHYSEMA
     Dosage: 160/4.5 MCG 2 PUFFS TWICE A DAY
     Route: 055
     Dates: start: 2014
  7. METOPROLOL. [Concomitant]
     Active Substance: METOPROLOL
  8. ASPIRIN. [Concomitant]
     Active Substance: ASPIRIN
     Indication: ANTICOAGULANT THERAPY
     Route: 048
  9. CRESTOR [Suspect]
     Active Substance: ROSUVASTATIN CALCIUM
     Indication: BLOOD CHOLESTEROL ABNORMAL
     Route: 048
     Dates: start: 20100301, end: 20100315
  10. IMDUR [Concomitant]
     Active Substance: ISOSORBIDE MONONITRATE
  11. PLENDIL [Concomitant]
     Active Substance: FELODIPINE

REACTIONS (8)
  - Respiratory tract congestion [Unknown]
  - Nausea [Unknown]
  - Pneumonia [Recovered/Resolved]
  - Weight decreased [Recovering/Resolving]
  - Condition aggravated [Recovered/Resolved]
  - Diverticulitis [Recovered/Resolved]
  - Dyspepsia [Unknown]
  - Fatigue [Unknown]
